FAERS Safety Report 12911725 (Version 1)
Quarter: 2016Q4

REPORT INFORMATION
  Report Type: Spontaneous
  Country: ID (occurrence: ID)
  Receive Date: 20161104
  Receipt Date: 20161104
  Transmission Date: 20170207
  Serious: Yes (Death)
  Sender: FDA-Public Use
  Company Number: ID-GLAXOSMITHKLINE-ID2016GSK158170

PATIENT
  Age: 70 Year
  Sex: Male

DRUGS (1)
  1. VENTOLIN [Suspect]
     Active Substance: ALBUTEROL SULFATE
     Indication: ASTHMA
     Dosage: UNK
     Route: 055
     Dates: start: 201608, end: 201608

REACTIONS (1)
  - Restlessness [Fatal]

NARRATIVE: CASE EVENT DATE: 201608
